FAERS Safety Report 9919099 (Version 2)
Quarter: 2014Q2

REPORT INFORMATION
  Report Type: Spontaneous
  Country: US (occurrence: US)
  Receive Date: 20140224
  Receipt Date: 20140403
  Transmission Date: 20141212
  Serious: No
  Sender: FDA-Public Use
  Company Number: US-PFIZER INC-2014052684

PATIENT
  Age: 41 Year
  Sex: Female
  Weight: 62.13 kg

DRUGS (2)
  1. CHANTIX [Suspect]
     Indication: SMOKING CESSATION THERAPY
     Dosage: UNK
     Route: 048
  2. ABILIFY [Concomitant]
     Indication: DEPRESSION
     Dosage: 15 MG, DAILY

REACTIONS (2)
  - Abnormal dreams [Recovered/Resolved]
  - Nausea [Recovered/Resolved]
